FAERS Safety Report 21955423 (Version 1)
Quarter: 2023Q1

REPORT INFORMATION
  Report Type: Other
  Country: US (occurrence: US)
  Receive Date: 20230206
  Receipt Date: 20230206
  Transmission Date: 20230417
  Serious: No
  Sender: FDA-Public Use
  Company Number: US-DECIPHERA PHARMACEUTICALS LLC-2023US000048

PATIENT
  Sex: Female

DRUGS (1)
  1. QINLOCK [Suspect]
     Active Substance: RIPRETINIB
     Indication: Neoplasm malignant
     Dosage: 150 MILLIGRAM, QD
     Route: 048
     Dates: start: 20210830

REACTIONS (13)
  - Liver function test increased [Unknown]
  - Adverse event [Unknown]
  - Chills [Unknown]
  - Blood potassium decreased [Unknown]
  - Heart rate increased [Unknown]
  - Dry mouth [Unknown]
  - Upper-airway cough syndrome [Unknown]
  - Lethargy [Unknown]
  - Gingival bleeding [Unknown]
  - Asthenia [Unknown]
  - Gastrointestinal disorder [Unknown]
  - Nausea [Unknown]
  - Headache [Unknown]
